FAERS Safety Report 12468502 (Version 1)
Quarter: 2016Q2

REPORT INFORMATION
  Report Type: Spontaneous
  Country: US (occurrence: US)
  Receive Date: 20160615
  Receipt Date: 20160615
  Transmission Date: 20160815
  Serious: Yes (Hospitalization)
  Sender: FDA-Public Use
  Company Number: US-ELI_LILLY_AND_COMPANY-US201606004447

PATIENT
  Age: 61 Year
  Sex: Female
  Weight: 104 kg

DRUGS (20)
  1. TYVASO [Suspect]
     Active Substance: TREPROSTINIL
     Indication: PULMONARY HYPERTENSION
     Dosage: 36 BREATHS FOUR TIMES DAILY
     Route: 055
     Dates: start: 20150304
  2. LASIX [Concomitant]
     Active Substance: FUROSEMIDE
     Indication: OEDEMA
     Dosage: 80 MG, QD
     Route: 048
  3. ATIVAN [Concomitant]
     Active Substance: LORAZEPAM
     Indication: DEPRESSION
     Dosage: 0.8 MG, EVERY 8 HRS
     Route: 048
     Dates: start: 20110809
  4. DELTASONE [Concomitant]
     Active Substance: PREDNISONE
     Indication: POLYMYOSITIS
     Dosage: 10 MG, QD
     Route: 048
     Dates: start: 20160322
  5. ADCIRCA [Suspect]
     Active Substance: TADALAFIL
     Indication: PULMONARY HYPERTENSION
     Dosage: 40 MG, QD
     Route: 048
  6. DUONEB [Concomitant]
     Active Substance: ALBUTEROL SULFATE\IPRATROPIUM BROMIDE
     Indication: HYPOXIA
     Dosage: UNK UNK, QD
     Route: 055
     Dates: start: 20151219
  7. OMEPRAZOLE. [Concomitant]
     Active Substance: OMEPRAZOLE
     Indication: GASTROOESOPHAGEAL REFLUX DISEASE
     Dosage: 20 MG, QD
     Route: 048
     Dates: start: 20110809
  8. FLEXERIL [Concomitant]
     Active Substance: CYCLOBENZAPRINE HYDROCHLORIDE
     Indication: MUSCLE SPASMS
     Dosage: 20 MG, QD
     Route: 048
     Dates: start: 20160415
  9. SYNTHROID [Concomitant]
     Active Substance: LEVOTHYROXINE SODIUM
     Indication: THYROIDECTOMY
     Dosage: 137 UG, QD
     Route: 048
     Dates: start: 20150213
  10. LOPRESSOR [Concomitant]
     Active Substance: METOPROLOL TARTRATE
     Indication: HYPERTENSION
     Dosage: 100 MG, QD
     Route: 048
     Dates: start: 20110809
  11. CALCIUM + VITAMIN D                /00944201/ [Concomitant]
     Active Substance: CALCIUM CARBONATE\CHOLECALCIFEROL
     Indication: OSTEOPENIA
     Dosage: 1 DF, UNKNOWN
     Route: 048
     Dates: start: 20160419
  12. DUONEB [Concomitant]
     Active Substance: ALBUTEROL SULFATE\IPRATROPIUM BROMIDE
     Indication: LUNG DISORDER
     Dosage: 1 DF, QID
     Route: 055
  13. NEURONTIN [Concomitant]
     Active Substance: GABAPENTIN
     Indication: RESTLESS LEGS SYNDROME
     Dosage: 900 MG, QD
     Route: 048
     Dates: start: 20151130
  14. LORTAB [Concomitant]
     Active Substance: ACETAMINOPHEN\HYDROCODONE BITARTRATE
     Indication: POLYMYOSITIS
     Dosage: UNK UNK, UNKNOWN
     Route: 048
     Dates: start: 20141120
  15. OXYGEN. [Concomitant]
     Active Substance: OXYGEN
     Dosage: UNK UNK, UNKNOWN
     Route: 055
  16. PROLIA [Concomitant]
     Active Substance: DENOSUMAB
     Dosage: 60 MG, EVERY SIX MONTHS
     Route: 058
  17. ARAVA [Concomitant]
     Active Substance: LEFLUNOMIDE
     Indication: POLYMYOSITIS
     Dosage: 20 MG, QD
     Route: 048
     Dates: start: 20141120
  18. POTASSIUM CHLORIDE. [Concomitant]
     Active Substance: POTASSIUM CHLORIDE
     Indication: HYPOKALAEMIA
     Dosage: 20 MBQ, QD
     Route: 048
     Dates: start: 20151201
  19. ASPIRIN                            /00002701/ [Concomitant]
     Active Substance: ASPIRIN
     Indication: HYPERTENSION
     Dosage: 81 MG, QD
     Route: 048
     Dates: start: 20110809
  20. RITUXAN [Concomitant]
     Active Substance: RITUXIMAB
     Dosage: 100 MG, EVERY SIX MONTHS
     Route: 042

REACTIONS (2)
  - Cardiac failure congestive [Recovering/Resolving]
  - Acute respiratory failure [Recovered/Resolved]

NARRATIVE: CASE EVENT DATE: 20160526
